FAERS Safety Report 20046102 (Version 1)
Quarter: 2021Q4

REPORT INFORMATION
  Report Type: Spontaneous
  Country: US (occurrence: None)
  Receive Date: 20211108
  Receipt Date: 20211108
  Transmission Date: 20220303
  Serious: No
  Sender: FDA-Public Use
  Company Number: None

PATIENT
  Sex: Female

DRUGS (1)
  1. HUMIRA [Suspect]
     Active Substance: ADALIMUMAB
     Indication: Ankylosing spondylitis
     Dosage: FREQUENCY : EVERY OTHER WEEK;?
     Route: 058
     Dates: start: 20211028, end: 20211101

REACTIONS (11)
  - Insurance issue [None]
  - Rash [None]
  - Palpitations [None]
  - Hypertension [None]
  - Nausea [None]
  - Therapy interrupted [None]
  - Dizziness [None]
  - Hypotension [None]
  - Abdominal pain [None]
  - Oral herpes [None]
  - Uveitis [None]
